FAERS Safety Report 12692639 (Version 1)
Quarter: 2016Q3

REPORT INFORMATION
  Report Type: Spontaneous
  Country: FR (occurrence: FR)
  Receive Date: 20160829
  Receipt Date: 20160829
  Transmission Date: 20161109
  Serious: Yes (Other)
  Sender: FDA-Public Use
  Company Number: FR-LEO PHARMA-243696

PATIENT
  Age: 56 Year
  Sex: Female

DRUGS (3)
  1. PROGESTERONE (ESTIMA) [Concomitant]
     Indication: PRODUCT USED FOR UNKNOWN INDICATION
  2. PICATO [Suspect]
     Active Substance: INGENOL MEBUTATE
     Indication: PRODUCT USED FOR UNKNOWN INDICATION
     Route: 061
     Dates: start: 20160811, end: 20160813
  3. ESTRADIOL (ESTREVA) [Concomitant]
     Indication: PRODUCT USED FOR UNKNOWN INDICATION
     Route: 061

REACTIONS (14)
  - Application site erythema [Unknown]
  - Burning sensation [Unknown]
  - Headache [Unknown]
  - Application site discharge [Unknown]
  - Drug administered at inappropriate site [Unknown]
  - Eyelid oedema [Unknown]
  - Application site scab [Unknown]
  - Periorbital oedema [Unknown]
  - Application site erosion [Unknown]
  - Eye pain [Unknown]
  - Face oedema [Unknown]
  - Application site oedema [Unknown]
  - Application site exfoliation [Unknown]
  - Nausea [Unknown]

NARRATIVE: CASE EVENT DATE: 20160811
